FAERS Safety Report 7020232-6 (Version None)
Quarter: 2010Q3

REPORT INFORMATION
  Report Type: 
  Country: None (occurrence: None)
  Receive Date: 20100929
  Receipt Date: 20100922
  Transmission Date: 20110219
  Serious: Yes (Hospitalization, Other)
  Sender: FDA-Public Use
  Company Number: PHHY2010CA63066

PATIENT
  Sex: Female

DRUGS (4)
  1. SANDOSTATIN LAR [Suspect]
     Indication: NEUROENDOCRINE CARCINOMA
     Dosage: 20 MG, QMO
     Route: 030
  2. SANDOSTATIN LAR [Suspect]
     Dosage: 10 MG, QMO
     Route: 030
     Dates: start: 20060911, end: 20070418
  3. SANDOSTATIN LAR [Suspect]
     Dosage: 10 MG ONCE A MONTH
     Route: 030
     Dates: start: 20100830
  4. SANDOSTATIN [Suspect]
     Dosage: 200 UG, BID
     Route: 058

REACTIONS (8)
  - ABDOMINAL DISCOMFORT [None]
  - CHEST DISCOMFORT [None]
  - CHEST PAIN [None]
  - DECREASED APPETITE [None]
  - DIARRHOEA [None]
  - FATIGUE [None]
  - LIVER OPERATION [None]
  - MUSCULAR WEAKNESS [None]
